FAERS Safety Report 4639131-X (Version None)
Quarter: 2005Q2

REPORT INFORMATION
  Report Type: 
  Country: None (occurrence: None)
  Receive Date: 20050418
  Receipt Date: 20050331
  Transmission Date: 20051028
  Serious: Yes (Disabling)
  Sender: FDA-Public Use
  Company Number: 2005AP01464

PATIENT
  Age: 81 Year
  Sex: Male

DRUGS (16)
  1. OMEPRAL [Suspect]
     Indication: DUODENAL ULCER HAEMORRHAGE
     Dosage: 20 MG DAILY PO
     Route: 048
     Dates: start: 20030414, end: 20030805
  2. OMEPRAL [Suspect]
     Indication: REFLUX OESOPHAGITIS
     Dosage: 20 MG DAILY PO
     Route: 048
     Dates: start: 20030414, end: 20030805
  3. OMEPRAL [Suspect]
     Indication: DUODENAL ULCER HAEMORRHAGE
     Dosage: 20 MG DAILY PO
     Route: 048
     Dates: start: 20030802, end: 20030806
  4. OMEPRAL [Suspect]
     Indication: DUODENAL ULCER HAEMORRHAGE
     Dosage: 20 MG DAILY PO
     Route: 048
     Dates: start: 20050124, end: 20050206
  5. UNASYN [Suspect]
     Indication: PNEUMONITIS
     Dosage: 6 G DAILY
     Dates: start: 20030806, end: 20030823
  6. ASPIRIN [Concomitant]
  7. PERSANTIN [Concomitant]
  8. NITROL [Concomitant]
  9. SIGMART [Concomitant]
  10. FOIPAN [Concomitant]
  11. GASTER [Concomitant]
  12. PRIMPERAN TAB [Concomitant]
  13. FERROMIA [Concomitant]
  14. YODEL [Concomitant]
  15. MUCODYNE [Concomitant]
  16. RULID [Concomitant]

REACTIONS (9)
  - DIALYSIS [None]
  - DRUG INEFFECTIVE [None]
  - DUODENAL ULCER HAEMORRHAGE [None]
  - MALNUTRITION [None]
  - NEPHRITIS INTERSTITIAL [None]
  - PNEUMONITIS [None]
  - RENAL DISORDER [None]
  - RENAL IMPAIRMENT [None]
  - WEIGHT DECREASED [None]
